FAERS Safety Report 19007297 (Version 4)
Quarter: 2021Q2

REPORT INFORMATION
  Report Type: Spontaneous
  Country: JP (occurrence: JP)
  Receive Date: 20210315
  Receipt Date: 20210423
  Transmission Date: 20210717
  Serious: Yes (Death, Other)
  Sender: FDA-Public Use
  Company Number: JP-ROCHE-2790191

PATIENT
  Age: 76 Year
  Sex: Male
  Weight: 75 kg

DRUGS (2)
  1. TECENTRIQ [Suspect]
     Active Substance: ATEZOLIZUMAB
     Indication: HEPATOCELLULAR CARCINOMA
     Route: 041
     Dates: start: 20210219, end: 20210219
  2. AVASTIN [Suspect]
     Active Substance: BEVACIZUMAB
     Indication: HEPATOCELLULAR CARCINOMA
     Route: 041
     Dates: start: 20210219, end: 20210219

REACTIONS (6)
  - Disseminated intravascular coagulation [Unknown]
  - Hypoxic-ischaemic encephalopathy [Unknown]
  - Disease progression [Fatal]
  - Pneumonia [Fatal]
  - Acute kidney injury [Unknown]
  - Embolism [Unknown]

NARRATIVE: CASE EVENT DATE: 20210304
